FAERS Safety Report 9530832 (Version 2)
Quarter: 2016Q3

REPORT INFORMATION
  Report Type: Spontaneous
  Country: CA (occurrence: CA)
  Receive Date: 20130918
  Receipt Date: 20160722
  Transmission Date: 20161109
  Serious: Yes (Other)
  Sender: FDA-Public Use
  Company Number: CA-009507513-1309CAN006046

PATIENT
  Sex: Female

DRUGS (2)
  1. SINGULAIR [Suspect]
     Active Substance: MONTELUKAST SODIUM
     Indication: NASAL POLYPS
  2. SINGULAIR [Suspect]
     Active Substance: MONTELUKAST SODIUM
     Indication: ASTHMA
     Dosage: UNK
     Route: 065
     Dates: start: 2006

REACTIONS (4)
  - Eosinophilic granulomatosis with polyangiitis [Not Recovered/Not Resolved]
  - Hypertension [Not Recovered/Not Resolved]
  - Osteopenia [Unknown]
  - Thyroiditis [Not Recovered/Not Resolved]
